FAERS Safety Report 7860716-1 (Version None)
Quarter: 2011Q4

REPORT INFORMATION
  Report Type: 
  Country: None (occurrence: None)
  Receive Date: 20111027
  Receipt Date: 20111025
  Transmission Date: 20120403
  Serious: Yes (Other)
  Sender: FDA-Public Use
  Company Number: US-ALEXION-A201101591

PATIENT
  Sex: Female
  Weight: 53 kg

DRUGS (2)
  1. MULTI-VITAMIN [Concomitant]
  2. SOLIRIS [Suspect]
     Indication: PAROXYSMAL NOCTURNAL HAEMOGLOBINURIA
     Dosage: UNK
     Route: 042
     Dates: start: 20111012

REACTIONS (1)
  - LARYNGEAL CANCER [None]
